FAERS Safety Report 4765836-6 (Version None)
Quarter: 2005Q3

REPORT INFORMATION
  Report Type: 
  Country: None (occurrence: None)
  Receive Date: 20050912
  Receipt Date: 20050902
  Transmission Date: 20060218
  Serious: Yes (Other)
  Sender: FDA-Public Use
  Company Number: US-ABBOTT-05P-163-0310196-00

PATIENT
  Sex: Female
  Weight: 49.032 kg

DRUGS (3)
  1. DEPAKOTE [Suspect]
     Indication: CONVULSION
     Route: 048
     Dates: start: 20050113, end: 20050129
  2. ORAL CHELATION [Concomitant]
     Indication: PROPHYLAXIS
     Route: 048
     Dates: end: 20050120
  3. VITAMIN B COMPLEX CAP [Concomitant]
     Indication: VITAMIN SUPPLEMENTATION
     Route: 048
     Dates: end: 20050120

REACTIONS (4)
  - CHOKING [None]
  - HYPERSENSITIVITY [None]
  - RETCHING [None]
  - THROAT TIGHTNESS [None]
